FAERS Safety Report 5861437-7 (Version None)
Quarter: 2008Q3

REPORT INFORMATION
  Report Type: 
  Country: None (occurrence: None)
  Receive Date: 20080827
  Receipt Date: 20080502
  Transmission Date: 20090109
  Serious: No
  Sender: FDA-Public Use
  Company Number: US-ABBOTT-08P-163-0450027-00

PATIENT
  Age: 41 Year
  Sex: Male

DRUGS (4)
  1. NIASPAN [Suspect]
     Indication: BLOOD CHOLESTEROL INCREASED
     Dosage: 1500MG DAILY
     Route: 048
     Dates: start: 20080301
  2. NIASPAN [Suspect]
     Dosage: 1000MG DAILY
     Route: 048
  3. NIASPAN [Suspect]
     Route: 048
     Dates: start: 20070101
  4. ACETYLSALICYLIC ACID SRT [Concomitant]
     Indication: DRUG USE FOR UNKNOWN INDICATION
     Route: 048
     Dates: start: 20070101

REACTIONS (1)
  - HEAT RASH [None]
